FAERS Safety Report 4609136-3 (Version None)
Quarter: 2005Q1

REPORT INFORMATION
  Report Type: 
  Country: None (occurrence: None)
  Receive Date: 20050311
  Receipt Date: 20050226
  Transmission Date: 20050727
  Serious: Yes (Hospitalization, Other)
  Sender: FDA-Public Use
  Company Number: 2004120297

PATIENT
  Age: 87 Year
  Sex: Female
  Weight: 56.6996 kg

DRUGS (4)
  1. CELEBREX [Suspect]
     Indication: BONE DISORDER
     Dosage: 200 MG (200 MG, 1 IN 1 D); ORAL
     Route: 048
     Dates: start: 20041001, end: 20041101
  2. WARFARIN [Concomitant]
  3. DIGOXIN [Concomitant]
  4. ATENOLOL [Concomitant]

REACTIONS (11)
  - ATRIAL FIBRILLATION [None]
  - BACK PAIN [None]
  - COMPRESSION FRACTURE [None]
  - DIZZINESS [None]
  - DYSPNOEA [None]
  - EATING DISORDER [None]
  - HEART RATE IRREGULAR [None]
  - ILEUS [None]
  - MUSCULOSKELETAL DISCOMFORT [None]
  - NAUSEA [None]
  - VOMITING [None]
